FAERS Safety Report 16399418 (Version 1)
Quarter: 2019Q2

REPORT INFORMATION
  Report Type: Spontaneous
  Country: DK (occurrence: DK)
  Receive Date: 20190606
  Receipt Date: 20190606
  Transmission Date: 20190711
  Serious: Yes (Hospitalization)
  Sender: FDA-Public Use
  Company Number: DK-TEVA-2019-DK-1058083

PATIENT
  Age: 65 Year
  Sex: Female
  Weight: 68 kg

DRUGS (9)
  1. ARTHROTEC [Concomitant]
     Active Substance: DICLOFENAC SODIUM\MISOPROSTOL
     Indication: ARTHRITIS
     Dosage: STYRKE: 50 + 0.2 MG.
     Route: 048
  2. COZAAR [Concomitant]
     Active Substance: LOSARTAN POTASSIUM
     Indication: HYPERTENSION
     Dosage: STYRKE: 50 MG, 100 MG PER 1 DAY
     Route: 048
  3. ACTRAPID [Concomitant]
     Active Substance: INSULIN HUMAN
     Indication: DIABETES MELLITUS
     Dosage: STYRKE: 100 IE / ML.12IU PER 1 DAY
     Route: 058
  4. NOVOMIX 30 PENFILL [Concomitant]
     Active Substance: INSULIN ASPART
     Indication: DIABETES MELLITUS
     Dosage: STYRKE: 100 E / ML, 14 IU PER 1 DAY
     Route: 058
  5. SALAZOPYRIN ENTABS [Concomitant]
     Indication: RHEUMATOID ARTHRITIS
     Dosage: STYRKE: 500 MG, 3000MG PER 1 DAY
     Route: 048
  6. PREDNISOLONE. [Suspect]
     Active Substance: PREDNISOLONE
     Indication: ADRENOCORTICAL STEROID THERAPY
     Dosage: 10 MILLIGRAM DAILY; STYRKE: 2.5 MG.
     Route: 048
     Dates: start: 20081211
  7. PAMOL [Concomitant]
     Active Substance: ACETAMINOPHEN
     Indication: PAIN
     Dosage: STYRKE: 500 MG. 2000MG PER 1 DAY
     Route: 048
  8. MABTHERA [Suspect]
     Active Substance: RITUXIMAB
     Indication: RHEUMATOID ARTHRITIS
     Dosage: DOSE: 2 INFUSIONS WITH 14 DAYS INTERVAL EVERY SIX MONTHS.
     Route: 042
     Dates: start: 20091204, end: 20160104
  9. ALENDRONIC ACID [Concomitant]
     Active Substance: ALENDRONIC ACID
     Indication: OSTEOPOROSIS
     Dosage: STYRKE: 70 MG PER 1 WEEKS
     Route: 048

REACTIONS (15)
  - Functional endoscopic sinus surgery [Recovered/Resolved]
  - Pneumonia mycoplasmal [Recovered/Resolved]
  - Otorrhoea [Recovered/Resolved]
  - Nasopharyngitis [Recovered/Resolved]
  - Nasal congestion [Recovered/Resolved]
  - Sinusitis [Recovered/Resolved]
  - Ear pain [Recovered/Resolved]
  - Paranasal sinus discomfort [Recovered/Resolved]
  - Ear tube insertion [Unknown]
  - Hypoacusis [Not Recovered/Not Resolved]
  - Hearing aid user [Not Recovered/Not Resolved]
  - Otitis media chronic [Recovered/Resolved]
  - Tinnitus [Not Recovered/Not Resolved]
  - Oropharyngeal pain [Recovered/Resolved]
  - Decreased immune responsiveness [Recovered/Resolved]

NARRATIVE: CASE EVENT DATE: 2015
